FAERS Safety Report 10087499 (Version 1)
Quarter: 2014Q2

REPORT INFORMATION
  Report Type: Spontaneous
  Country: US (occurrence: US)
  Receive Date: 20140418
  Receipt Date: 20140418
  Transmission Date: 20141212
  Serious: Yes (Death)
  Sender: FDA-Public Use
  Company Number: US-NAPPMUNDI-USA-2013-0108081

PATIENT
  Sex: Male

DRUGS (2)
  1. OXYCONTIN (NDA 22-272) [Suspect]
     Indication: PRODUCT USED FOR UNKNOWN INDICATION
     Dosage: 40 MG, Q12H
     Route: 048
  2. OXYCONTIN (NDA 22-272) [Suspect]
     Dosage: 80 MG, Q12H
     Route: 048

REACTIONS (2)
  - Overdose [Fatal]
  - Intentional product misuse [Unknown]
